FAERS Safety Report 10073621 (Version 2)
Quarter: 2014Q2

REPORT INFORMATION
  Report Type: Report from Study
  Country: MX (occurrence: MX)
  Receive Date: 20140411
  Receipt Date: 20140411
  Transmission Date: 20141212
  Serious: Yes (Death)
  Sender: FDA-Public Use
  Company Number: PHHY2011MX84448

PATIENT
  Age: 90 Year
  Sex: Female

DRUGS (1)
  1. EXFORGE [Suspect]
     Indication: HYPERTENSION
     Dosage: 1 DF (160/10 MG), DAILY
     Route: 048
     Dates: start: 201003

REACTIONS (3)
  - Pneumonia [Fatal]
  - Hypertension [Fatal]
  - Constipation [Not Recovered/Not Resolved]
